FAERS Safety Report 7289932-7 (Version None)
Quarter: 2011Q1

REPORT INFORMATION
  Report Type: 
  Country: None (occurrence: None)
  Receive Date: 20110214
  Receipt Date: 20110207
  Transmission Date: 20110831
  Serious: Yes (Other)
  Sender: FDA-Public Use
  Company Number: US-AMGEN-USASP2010012030

PATIENT
  Age: 38 Year
  Sex: Female

DRUGS (5)
  1. ENBREL [Suspect]
     Indication: RHEUMATOID ARTHRITIS
     Dosage: 50 MG, QWK
     Dates: start: 20100710, end: 20100901
  2. METHOTREXATE [Concomitant]
  3. SULFASALAZINE [Concomitant]
     Dosage: UNK
     Dates: start: 20100901
  4. HYDROXYCHLOROQUINE SULFATE [Concomitant]
  5. LEFLUNOMIDE [Concomitant]

REACTIONS (3)
  - ANTINUCLEAR ANTIBODY POSITIVE [None]
  - RASH [None]
  - DOUBLE STRANDED DNA ANTIBODY [None]
